FAERS Safety Report 7721669-X (Version None)
Quarter: 2011Q3

REPORT INFORMATION
  Report Type: 
  Country: None (occurrence: None)
  Receive Date: 20110831
  Receipt Date: 20110825
  Transmission Date: 20111222
  Serious: Yes (Hospitalization)
  Sender: FDA-Public Use
  Company Number: US-GLAXOSMITHKLINE-A0942293A

PATIENT
  Age: 20 Year
  Sex: Male

DRUGS (3)
  1. FLOVENT [Suspect]
     Indication: ASTHMA
     Route: 055
     Dates: start: 19980101, end: 20020101
  2. VENTOLIN HFA [Suspect]
     Indication: ASTHMA
     Dosage: 2PUFF THREE TIMES PER DAY
     Route: 055
     Dates: start: 19980101
  3. AMOXIL [Concomitant]

REACTIONS (4)
  - CANDIDIASIS [None]
  - LEUKOPLAKIA [None]
  - ANXIETY [None]
  - HEART RATE INCREASED [None]
